FAERS Safety Report 4564390-1 (Version None)
Quarter: 2005Q1

REPORT INFORMATION
  Report Type: 
  Country: None (occurrence: None)
  Receive Date: 20050126
  Receipt Date: 20050114
  Transmission Date: 20050727
  Serious: Yes (Other)
  Sender: FDA-Public Use
  Company Number: 2005014279

PATIENT
  Age: 59 Year
  Sex: Female

DRUGS (1)
  1. AROMASIN [Suspect]
     Indication: BREAST CANCER
     Dosage: 25 MG (25 MG, DAILY), ORAL
     Route: 048

REACTIONS (4)
  - ABDOMINAL PAIN [None]
  - ADENOCARCINOMA [None]
  - CARCINOEMBRYONIC ANTIGEN INCREASED [None]
  - COLON CANCER [None]
